FAERS Safety Report 6621566-7 (Version None)
Quarter: 2010Q1

REPORT INFORMATION
  Report Type: 
  Country: None (occurrence: None)
  Receive Date: 20100309
  Receipt Date: 20100303
  Transmission Date: 20100710
  Serious: Yes (Life-Threatening)
  Sender: FDA-Public Use
  Company Number: JP-ABBOTT-10P-087-0623181-00

PATIENT
  Age: 74 Year
  Sex: Male
  Weight: 51 kg

DRUGS (16)
  1. LEUPROLIDE ACETATE [Suspect]
     Indication: PROSTATE CANCER STAGE IV
     Route: 058
     Dates: start: 20060720
  2. LEUPROLIDE ACETATE [Suspect]
     Dates: start: 20060623, end: 20060623
  3. LEUPROLIDE ACETATE [Suspect]
     Dates: start: 20080715
  4. FLUTAMIDE [Concomitant]
     Indication: PROSTATE CANCER STAGE IV
     Route: 048
     Dates: start: 20070424, end: 20070730
  5. ESTRAMUSTINE PHOSPHATE SODIUM [Concomitant]
     Indication: PROSTATE CANCER STAGE IV
     Route: 048
     Dates: start: 20070731, end: 20080226
  6. ALFAROL [Concomitant]
     Indication: PROSTATE CANCER STAGE IV
     Route: 048
     Dates: start: 20060623, end: 20070730
  7. RINDERON [Concomitant]
     Indication: PROSTATE CANCER STAGE IV
     Route: 048
     Dates: start: 20070731
  8. BICALUTAMIDE [Concomitant]
     Indication: PROSTATE CANCER STAGE IV
     Route: 048
     Dates: start: 20061024, end: 20070423
  9. CHLORMADINONE ACETATE TAB [Concomitant]
     Indication: PROSTATE CANCER STAGE IV
     Route: 048
     Dates: start: 20060623, end: 20061023
  10. DIETHYLSTILBESTROL [Concomitant]
     Indication: PROSTATE CANCER STAGE IV
     Route: 042
     Dates: start: 20060703, end: 20090729
  11. URSO 250 [Concomitant]
     Indication: LIVER DISORDER
     Route: 048
     Dates: start: 20060629, end: 20070730
  12. PROHEPARUM [Concomitant]
     Indication: LIVER DISORDER
     Route: 048
     Dates: start: 20060629, end: 20070730
  13. MUCOSTA [Concomitant]
     Indication: GASTRITIS PROPHYLAXIS
     Route: 048
     Dates: start: 20070731
  14. TRANSFUSION OF MAP-ADDED RED BLOOD CELL CONCENTRATE [Concomitant]
     Indication: DRUG USE FOR UNKNOWN INDICATION
     Dates: start: 20060623, end: 20060623
  15. TRANSFUSION OF MAP-ADDED RED BLOOD CELL CONCENTRATE [Concomitant]
     Dates: start: 20060624, end: 20060624
  16. TRANSFUSION OF MAP-ADDED RED BLOOD CELL CONCENTRATE [Concomitant]
     Dates: start: 20060629, end: 20060629

REACTIONS (2)
  - HYPERLIPIDAEMIA [None]
  - METASTASES TO BONE [None]
